FAERS Safety Report 21935000 (Version 1)
Quarter: 2023Q1

REPORT INFORMATION
  Report Type: Spontaneous
  Country: DE (occurrence: None)
  Receive Date: 20230201
  Receipt Date: 20230201
  Transmission Date: 20230418
  Serious: Yes (Hospitalization, Other)
  Sender: FDA-Public Use
  Company Number: 2023A023258

PATIENT
  Age: 71 Year
  Sex: Male
  Weight: 115 kg

DRUGS (4)
  1. BUDESONIDE\FORMOTEROL\GLYCOPYRRONIUM [Suspect]
     Active Substance: BUDESONIDE\FORMOTEROL\GLYCOPYRRONIUM
     Indication: Chronic obstructive pulmonary disease
     Route: 055
  2. RAMIPRIL [Concomitant]
     Active Substance: RAMIPRIL
     Dosage: 5
  3. FEXOFENADINE HYDROCHLORIDE [Concomitant]
     Active Substance: FEXOFENADINE HYDROCHLORIDE
     Dosage: 120
  4. FUROSEMIDE\SPIRONOLACTONE [Concomitant]
     Active Substance: FUROSEMIDE\SPIRONOLACTONE
     Dosage: 50/20

REACTIONS (8)
  - Renal impairment [Unknown]
  - Emphysema [Unknown]
  - Respiratory failure [Unknown]
  - Pneumonitis [Unknown]
  - Obstructive airways disorder [Unknown]
  - Barotrauma [Recovered/Resolved]
  - Hypoventilation [Unknown]
  - Sleep apnoea syndrome [Unknown]

NARRATIVE: CASE EVENT DATE: 20220101
